FAERS Safety Report 8814501 (Version 3)
Quarter: 2013Q2

REPORT INFORMATION
  Report Type: Spontaneous
  Country: US (occurrence: None)
  Receive Date: 20120926
  Receipt Date: 20130521
  Transmission Date: 20140414
  Serious: Yes (Life-Threatening, Hospitalization)
  Sender: FDA-Public Use
  Company Number: TPA2012A06723

PATIENT
  Age: 58 Year
  Sex: Male
  Weight: 69.4 kg

DRUGS (8)
  1. PIOGLITAZONE HYDROCHLORIDE [Suspect]
     Indication: RHEUMATOID ARTHRITIS
     Route: 048
     Dates: start: 20111216, end: 20120608
  2. PREDNISONE (PREDNISONE) [Concomitant]
  3. ARAVA (LEFLUNOMIDE) [Concomitant]
  4. VALTREX (VALACICLOVIR HYDROCHLORIDE) [Concomitant]
  5. COUMADIN (WARFARIN SODIUM) [Concomitant]
  6. LOVENOX (ENOXAPARIN SODIUM) [Concomitant]
  7. ACYCLOVIR (ACICLOVIR) [Concomitant]
  8. METHOTREXATE (METHOTREXATE) TABLETS [Concomitant]

REACTIONS (2)
  - Pulmonary embolism [None]
  - Back pain [None]
